FAERS Safety Report 5912189-3 (Version None)
Quarter: 2008Q4

REPORT INFORMATION
  Report Type: 
  Country: None (occurrence: None)
  Receive Date: 20081008
  Receipt Date: 20080930
  Transmission Date: 20090506
  Serious: Yes (Hospitalization, Other)
  Sender: FDA-Public Use
  Company Number: US-WYE-H06196208

PATIENT
  Age: 45 Year

DRUGS (1)
  1. TYGACIL [Suspect]
     Indication: LIVER ABSCESS
     Dosage: 50 MG (FREQUENCY UNKNOWN)
     Route: 042

REACTIONS (2)
  - ACINETOBACTER INFECTION [None]
  - PATHOGEN RESISTANCE [None]
